FAERS Safety Report 16137270 (Version 1)
Quarter: 2019Q2

REPORT INFORMATION
  Report Type: Report from Study
  Country: ZA (occurrence: ZA)
  Receive Date: 20190401
  Receipt Date: 20190401
  Transmission Date: 20190711
  Serious: Yes (Hospitalization, Other)
  Sender: FDA-Public Use
  Company Number: ZA-SA-2019SA053315

PATIENT
  Age: 57 Year
  Sex: Female

DRUGS (3)
  1. GLUCOPHAGE [Concomitant]
     Active Substance: METFORMIN HYDROCHLORIDE
     Dosage: 850 MG, TID, 850 MG AFTER LUNCH AND 850 MG AFTER BREAKFAST AND 850 MG AFTER SUPPER
     Route: 065
     Dates: start: 20180911
  2. OPTISULIN (INSULIN GLARGINE) [Suspect]
     Active Substance: INSULIN GLARGINE
     Dosage: 32 U, HS, AT BEDTIME
     Route: 065
     Dates: start: 20180911
  3. PREXUM [Concomitant]
     Active Substance: PERINDOPRIL ERBUMINE
     Dosage: 5 MG, QD, AFTER BREAKFAST
     Route: 065
     Dates: start: 20180911

REACTIONS (2)
  - Bronchitis [Unknown]
  - Lung infection [Recovered/Resolved]

NARRATIVE: CASE EVENT DATE: 20190223
